FAERS Safety Report 18656623 (Version 1)
Quarter: 2020Q4

REPORT INFORMATION
  Report Type: Spontaneous
  Country: US (occurrence: US)
  Receive Date: 20201223
  Receipt Date: 20201223
  Transmission Date: 20210114
  Serious: Yes (Disabling, Other)
  Sender: FDA-Public Use
  Company Number: US-PURDUE-USA-2020-0188579

PATIENT
  Sex: Female

DRUGS (4)
  1. OXYCODONE HCL TABLETS (91-490) [Suspect]
     Active Substance: OXYCODONE HYDROCHLORIDE
     Indication: BACK PAIN
     Dosage: 5 MG, DAILY
     Route: 048
  2. OXYCONTIN [Suspect]
     Active Substance: OXYCODONE HYDROCHLORIDE
     Indication: BACK PAIN
     Dosage: 20 MG, TID
     Route: 048
     Dates: start: 2007
  3. OXYCONTIN [Suspect]
     Active Substance: OXYCODONE HYDROCHLORIDE
     Indication: NECK PAIN
  4. OXYCODONE HCL TABLETS (91-490) [Suspect]
     Active Substance: OXYCODONE HYDROCHLORIDE
     Indication: NECK PAIN

REACTIONS (5)
  - Disability [Unknown]
  - Cerebrovascular accident [Unknown]
  - Drug dependence [Unknown]
  - Paralysis [Unknown]
  - Bedridden [Unknown]

NARRATIVE: CASE EVENT DATE: 20160207
